FAERS Safety Report 11401148 (Version 9)
Quarter: 2016Q1

REPORT INFORMATION
  Report Type: Report from Study
  Country: GB (occurrence: GB)
  Receive Date: 20150820
  Receipt Date: 20160301
  Transmission Date: 20160525
  Serious: Yes (Death, Other)
  Sender: FDA-Public Use
  Company Number: GB-GLAXOSMITHKLINE-GB2015098616

PATIENT
  Age: 67 Year
  Sex: Male

DRUGS (2)
  1. FLUTICASONE PROPIONATE+SALMETEROL XINAFOATE [Suspect]
     Active Substance: FLUTICASONE PROPIONATE\SALMETEROL XINAFOATE
     Indication: ASTHMA
     Dosage: 250/50 UG BID
     Route: 055
     Dates: start: 20150130
  2. SERETIDE [Concomitant]
     Active Substance: FLUTICASONE FUROATE\SALMETEROL XINAFOATE
     Indication: ASTHMA
     Dosage: 250/50 004 BID
     Route: 055
     Dates: start: 20140212, end: 20150130

REACTIONS (4)
  - Inappropriate antidiuretic hormone secretion [Not Recovered/Not Resolved]
  - Metastases to central nervous system [Fatal]
  - Pneumonia aspiration [Fatal]
  - Colorectal cancer metastatic [Fatal]

NARRATIVE: CASE EVENT DATE: 20150414
